FAERS Safety Report 10272658 (Version 3)
Quarter: 2015Q1

REPORT INFORMATION
  Report Type: Report from Study
  Country: ZA (occurrence: ZA)
  Receive Date: 20140702
  Receipt Date: 20150123
  Transmission Date: 20150720
  Serious: No
  Sender: FDA-Public Use
  Company Number: PHHY2014ZA080724

PATIENT
  Age: 76 Year
  Sex: Female

DRUGS (2)
  1. ACLASTA [Suspect]
     Active Substance: ZOLEDRONIC ACID
     Indication: OSTEOPOROSIS
     Dosage: 5 MG/ML, UNK
     Route: 042
     Dates: start: 20120601
  2. ACLASTA [Suspect]
     Active Substance: ZOLEDRONIC ACID
     Dosage: 5 MG/ML, UNK
     Route: 042
     Dates: start: 20130607

REACTIONS (1)
  - Iritis [Recovered/Resolved]

NARRATIVE: CASE EVENT DATE: 20130401
